FAERS Safety Report 14211180 (Version 1)
Quarter: 2017Q4

REPORT INFORMATION
  Report Type: Spontaneous
  Country: US (occurrence: None)
  Receive Date: 20171121
  Receipt Date: 20171121
  Transmission Date: 20180321
  Serious: Yes (Disabling)
  Sender: FDA-Public Use
  Company Number: None

PATIENT
  Age: 76 Year
  Sex: Female
  Weight: 73.48 kg

DRUGS (6)
  1. SYMBICORT [Concomitant]
     Active Substance: BUDESONIDE\FORMOTEROL FUMARATE DIHYDRATE
  2. GABAPENTIN 300MG CAP NORT (GENERIC FOR NEURONTIN) [Suspect]
     Active Substance: GABAPENTIN
     Indication: NERVE INJURY
     Dosage: 300 MG. 1 PILL 2X DAILY MOUTH
     Route: 048
     Dates: start: 20170125, end: 20170618
  3. IBUPROFEN. [Concomitant]
     Active Substance: IBUPROFEN
  4. VITAMIN D W CALCIUM [Concomitant]
  5. ALBUTEROL INHALER [Concomitant]
     Active Substance: ALBUTEROL
  6. ENALAPRIL [Concomitant]
     Active Substance: ENALAPRIL

REACTIONS (6)
  - Oropharyngeal pain [None]
  - Ear infection [None]
  - Economic problem [None]
  - Discomfort [None]
  - Hypoacusis [None]
  - Viral infection [None]

NARRATIVE: CASE EVENT DATE: 20170619
